FAERS Safety Report 10246584 (Version 1)
Quarter: 2014Q2

REPORT INFORMATION
  Report Type: Spontaneous
  Country: US (occurrence: US)
  Receive Date: 20140619
  Receipt Date: 20140619
  Transmission Date: 20141212
  Serious: No
  Sender: FDA-Public Use
  Company Number: US-B.I. PHARMACEUTICALS,INC./RIDGEFIELD-2014-BI-26232BP

PATIENT
  Sex: Female
  Weight: 68 kg

DRUGS (13)
  1. SPIRIVA [Suspect]
     Indication: DYSPNOEA
     Dosage: 18 MCG
     Route: 055
     Dates: start: 2007
  2. BUDESONIDE [Concomitant]
     Indication: CHRONIC OBSTRUCTIVE PULMONARY DISEASE
     Dosage: FORMULATION: INHALATION AEROSOL
     Route: 055
     Dates: start: 2007
  3. CRESTOR [Concomitant]
     Indication: BLOOD CHOLESTEROL INCREASED
     Dosage: 10 MG
     Route: 048
  4. LASIX [Concomitant]
     Indication: JOINT SWELLING
     Route: 048
  5. POTASSIUM [Concomitant]
     Indication: PROPHYLAXIS
     Dosage: 28.2857 MG
     Route: 048
  6. POTASSIUM [Concomitant]
     Indication: MUSCLE SPASMS
  7. CLONAZEPAM [Concomitant]
     Indication: MUSCLE SPASMS
     Dosage: 1 MG
     Route: 048
  8. ACIPHEX [Concomitant]
     Indication: GASTRIC CANCER
     Dosage: 20 MG
     Route: 048
  9. CALCIUM PLUS D AND C [Concomitant]
     Dosage: 600 MG
     Route: 048
  10. ASMANEX [Concomitant]
     Indication: CHRONIC OBSTRUCTIVE PULMONARY DISEASE
     Dosage: FORMULATIN: INHALATION SPRAY
     Route: 055
     Dates: start: 2007
  11. LISINOPRIL [Concomitant]
     Indication: HYPERTENSION
     Dosage: 20 MG
     Route: 048
  12. ASPIRIN [Concomitant]
     Dosage: 81 MG
     Route: 048
  13. MULTI VITAMIN [Concomitant]
     Dosage: DOSE PER APPLICATION: 1 TABLET; DAILY DOSE: 1 TABLET
     Route: 048

REACTIONS (2)
  - Off label use [Unknown]
  - Dyspnoea [Not Recovered/Not Resolved]
